FAERS Safety Report 19106551 (Version 1)
Quarter: 2021Q2

REPORT INFORMATION
  Report Type: Spontaneous
  Country: US (occurrence: US)
  Receive Date: 20210408
  Receipt Date: 20210408
  Transmission Date: 20210717
  Serious: No
  Sender: FDA-Public Use
  Company Number: US-ASTRAZENECA-2021A136045

PATIENT
  Age: 78 Year
  Sex: Male

DRUGS (1)
  1. FARXIGA [Suspect]
     Active Substance: DAPAGLIFLOZIN PROPANEDIOL
     Indication: LEFT VENTRICULAR FAILURE
     Route: 048
     Dates: start: 2021, end: 20210302

REACTIONS (1)
  - Blood pressure decreased [Recovered/Resolved]
